FAERS Safety Report 24723910 (Version 1)
Quarter: 2024Q4

REPORT INFORMATION
  Report Type: Spontaneous
  Country: IN (occurrence: IN)
  Receive Date: 20241211
  Receipt Date: 20241211
  Transmission Date: 20250115
  Serious: Yes (Other)
  Sender: ETHYPHARM
  Company Number: IN-ETHYPHARM-2024003297

PATIENT

DRUGS (1)
  1. BUPRENORPHINE HYDROCHLORIDE [Suspect]
     Active Substance: BUPRENORPHINE HYDROCHLORIDE
     Indication: Product used for unknown indication
     Route: 042

REACTIONS (3)
  - Embolia cutis medicamentosa [Unknown]
  - Intentional product use issue [Unknown]
  - Wrong technique in product usage process [Unknown]
